FAERS Safety Report 5293199-9 (Version None)
Quarter: 2007Q2

REPORT INFORMATION
  Report Type: 
  Country: None (occurrence: None)
  Receive Date: 20070411
  Receipt Date: 20070327
  Transmission Date: 20071010
  Serious: Yes (Death)
  Sender: FDA-Public Use
  Company Number: US-JNJFOC-20070100308

PATIENT
  Sex: Male
  Weight: 87.09 kg

DRUGS (3)
  1. REMICADE [Suspect]
     Route: 042
  2. REMICADE [Suspect]
     Dosage: 6 VIALS
     Route: 042
  3. REMICADE [Suspect]
     Indication: COLITIS ULCERATIVE
     Dosage: 6 VIALS
     Route: 042

REACTIONS (4)
  - CLOSTRIDIAL INFECTION [None]
  - MYOCARDIAL INFARCTION [None]
  - PROCTITIS ULCERATIVE [None]
  - TRANSFUSION [None]
